FAERS Safety Report 8116328-8 (Version None)
Quarter: 2012Q1

REPORT INFORMATION
  Report Type: 
  Country: None (occurrence: None)
  Receive Date: 20120206
  Receipt Date: 20120202
  Transmission Date: 20120608
  Serious: Yes (Congenital Anomaly)
  Sender: FDA-Public Use
  Company Number: US-GLAXOSMITHKLINE-A0963940A

PATIENT

DRUGS (4)
  1. DEMEROL [Concomitant]
     Route: 064
  2. PAXIL [Suspect]
     Indication: GENERALISED ANXIETY DISORDER
     Dosage: 20MG PER DAY
     Route: 064
     Dates: start: 20001221, end: 20010219
  3. VALIUM [Concomitant]
     Route: 064
     Dates: start: 20001220, end: 20010219
  4. PRECARE [Concomitant]
     Route: 064

REACTIONS (6)
  - CARDIAC DISORDER [None]
  - ATRIAL SEPTAL DEFECT [None]
  - VENTRICULAR SEPTAL DEFECT [None]
  - FOETAL EXPOSURE DURING PREGNANCY [None]
  - EXOMPHALOS [None]
  - PULMONARY ARTERY STENOSIS CONGENITAL [None]
